FAERS Safety Report 19489114 (Version 1)
Quarter: 2021Q3

REPORT INFORMATION
  Report Type: Spontaneous
  Country: CN (occurrence: CN)
  Receive Date: 20210703
  Receipt Date: 20210703
  Transmission Date: 20211014
  Serious: Yes (Other)
  Sender: FDA-Public Use
  Company Number: CN-LEADINGPHARMA-CN-2021LEALIT00207

PATIENT
  Age: 25 Year
  Sex: Female

DRUGS (1)
  1. LIDOCAINE. [Suspect]
     Active Substance: LIDOCAINE
     Indication: LOCAL ANAESTHESIA
     Route: 065

REACTIONS (2)
  - Dizziness [Unknown]
  - Angioedema [Unknown]
